FAERS Safety Report 14549135 (Version 1)
Quarter: 2018Q1

REPORT INFORMATION
  Report Type: Spontaneous
  Country: US (occurrence: US)
  Receive Date: 20180219
  Receipt Date: 20180219
  Transmission Date: 20180509
  Serious: No
  Sender: FDA-Public Use
  Company Number: US-IPSEN BIOPHARMACEUTICALS, INC.-2017-02627

PATIENT
  Age: 40 Year
  Sex: Female

DRUGS (4)
  1. DYSPORT [Suspect]
     Active Substance: ABOBOTULINUMTOXINA
     Indication: OFF LABEL USE
  2. DYSPORT [Suspect]
     Active Substance: ABOBOTULINUMTOXINA
     Indication: SKIN WRINKLING
     Dosage: 78 UNITS
     Route: 065
     Dates: start: 20170306, end: 20170306
  3. DYSPORT [Suspect]
     Active Substance: ABOBOTULINUMTOXINA
     Indication: SKIN WRINKLING
     Dosage: 150 UNITS
     Route: 065
     Dates: start: 20170325, end: 20170325
  4. DYSPORT [Suspect]
     Active Substance: ABOBOTULINUMTOXINA
     Indication: SKIN WRINKLING

REACTIONS (6)
  - Drug ineffective [Unknown]
  - Inappropriate schedule of drug administration [Unknown]
  - Overdose [Unknown]
  - Product storage error [Unknown]
  - Off label use [Unknown]
  - Product preparation error [Unknown]
